FAERS Safety Report 16222268 (Version 1)
Quarter: 2019Q2

REPORT INFORMATION
  Report Type: Spontaneous
  Country: IT (occurrence: IT)
  Receive Date: 20190422
  Receipt Date: 20190422
  Transmission Date: 20190711
  Serious: Yes (Other)
  Sender: FDA-Public Use
  Company Number: IT-LUPIN PHARMACEUTICALS INC.-2019-02542

PATIENT
  Age: 47 Year
  Sex: Male
  Weight: 75 kg

DRUGS (12)
  1. OMEPRAZOLE. [Concomitant]
     Active Substance: OMEPRAZOLE
     Indication: PRODUCT USED FOR UNKNOWN INDICATION
     Dosage: 40 MILLIGRAM, QD
     Route: 048
  2. SOTALOL. [Concomitant]
     Active Substance: SOTALOL
     Indication: PRODUCT USED FOR UNKNOWN INDICATION
     Dosage: 80 MILLIGRAM, TID
     Route: 048
  3. METOCLOPRAMIDE. [Suspect]
     Active Substance: METOCLOPRAMIDE
     Indication: NAUSEA
     Dosage: 10 MILLIGRAM, TID (EVERY 08-HOUR, TOTAL OF 6 DOSES)
     Route: 042
  4. TACROLIMUS. [Interacting]
     Active Substance: TACROLIMUS
     Indication: PRODUCT USED FOR UNKNOWN INDICATION
     Dosage: 3 MILLIGRAM, BID (EVERY 12 HOURS) (STABLE BETWEEN 7 AND 8 NG/ML)
     Route: 048
  5. METOCLOPRAMIDE. [Interacting]
     Active Substance: METOCLOPRAMIDE
     Indication: VOMITING
  6. AZITHROMYCIN ANHYDROUS. [Concomitant]
     Active Substance: AZITHROMYCIN ANHYDROUS
     Indication: PRODUCT USED FOR UNKNOWN INDICATION
     Dosage: 250 MILLIGRAM, EVERY 48 HOURS
     Route: 048
  7. EVEROLIMUS. [Concomitant]
     Active Substance: EVEROLIMUS
     Indication: PRODUCT USED FOR UNKNOWN INDICATION
     Dosage: 1.25 MILLIGRAM, BID (EVERY 12 HOURS)
     Route: 048
  8. TACROLIMUS. [Interacting]
     Active Substance: TACROLIMUS
     Dosage: 3.5 MILLIGRAM, BID (EVERY 12 HOURS)
     Route: 048
  9. TACROLIMUS. [Interacting]
     Active Substance: TACROLIMUS
     Dosage: 1.5 MILLIGRAM, BID
     Route: 048
  10. FOLIC ACID. [Concomitant]
     Active Substance: FOLIC ACID
     Indication: PRODUCT USED FOR UNKNOWN INDICATION
     Dosage: 7.5 MILLIGRAM, QD
     Route: 048
  11. URSODEOXYCHOLIC ACID [Concomitant]
     Active Substance: URSODIOL
     Indication: PRODUCT USED FOR UNKNOWN INDICATION
     Dosage: 300 MILLIGRAM, TID (EVERY 8 HOURS)
     Route: 048
  12. ALPRAZOLAM. [Concomitant]
     Active Substance: ALPRAZOLAM
     Indication: PRODUCT USED FOR UNKNOWN INDICATION
     Dosage: 0.25 MILLIGRAM, QD
     Route: 048

REACTIONS (3)
  - Drug interaction [Unknown]
  - Blood urea increased [Recovered/Resolved]
  - Immunosuppressant drug level increased [Recovered/Resolved]
